FAERS Safety Report 25101452 (Version 1)
Quarter: 2025Q1

REPORT INFORMATION
  Report Type: Spontaneous
  Country: CN (occurrence: CN)
  Receive Date: 20250320
  Receipt Date: 20250320
  Transmission Date: 20250409
  Serious: Yes (Other)
  Sender: ANI
  Company Number: CN-ANIPHARMA-2025-CN-000063

PATIENT
  Age: 79 Year
  Sex: Male
  Weight: 57.3 kg

DRUGS (3)
  1. BICALUTAMIDE [Suspect]
     Active Substance: BICALUTAMIDE
     Indication: Prostate cancer
     Route: 048
     Dates: start: 20241213, end: 20250218
  2. GOSERELIN [Suspect]
     Active Substance: GOSERELIN
     Route: 058
     Dates: start: 20250209
  3. DEVICE [Suspect]
     Active Substance: DEVICE

REACTIONS (1)
  - Myelosuppression [Unknown]
